FAERS Safety Report 19984949 (Version 2)
Quarter: 2022Q1

REPORT INFORMATION
  Report Type: Spontaneous
  Country: IT (occurrence: IT)
  Receive Date: 20211022
  Receipt Date: 20220211
  Transmission Date: 20220423
  Serious: No
  Sender: FDA-Public Use
  Company Number: IT-ROCHE-2899767

PATIENT
  Age: 67 Year
  Sex: Female
  Weight: 70 kg

DRUGS (10)
  1. TRASTUZUMAB [Suspect]
     Active Substance: TRASTUZUMAB
     Indication: Breast cancer
     Dosage: 8 MG/KG, Q3WK
     Route: 041
     Dates: start: 20210716
  2. TRASTUZUMAB [Suspect]
     Active Substance: TRASTUZUMAB
     Indication: HER2 positive breast cancer
  3. PACLITAXEL [Suspect]
     Active Substance: PACLITAXEL
     Indication: Breast cancer
     Dosage: 90 MG/M2
     Route: 042
     Dates: start: 20210716
  4. PACLITAXEL [Suspect]
     Active Substance: PACLITAXEL
     Indication: HER2 positive breast cancer
     Dosage: LAST DOSE BEFORE SAE: 23/JUL/2021TOTAL DOSE OF LAST ADMINISTARTION BEFORE SAE ONSET: 160.20 MG ON DA
     Route: 042
     Dates: start: 20210716
  5. CARBOPLATIN [Suspect]
     Active Substance: CARBOPLATIN
     Indication: HER2 positive breast cancer
     Dosage: AUC 2 I.V. ON DAY 1 AND DAY 8
     Route: 042
     Dates: start: 20210716
  6. BISOPROLOL FUMARATE [Concomitant]
     Active Substance: BISOPROLOL FUMARATE
     Indication: Sinus tachycardia
     Dosage: UNK
  7. PERTUZUMAB [Concomitant]
     Active Substance: PERTUZUMAB
     Indication: Breast cancer
     Dosage: 840 MILLIGRAM, Q3WK
     Route: 042
     Dates: start: 20210716
  8. PERTUZUMAB [Concomitant]
     Active Substance: PERTUZUMAB
     Indication: HER2 positive breast cancer
  9. ATEZOLIZUMAB [Concomitant]
     Active Substance: ATEZOLIZUMAB
     Indication: HER2 positive breast cancer
     Dosage: UNK
     Route: 041
     Dates: start: 20210716
  10. ATEZOLIZUMAB [Concomitant]
     Active Substance: ATEZOLIZUMAB
     Route: 041
     Dates: start: 20210716

REACTIONS (3)
  - Chest discomfort [Recovered/Resolved]
  - Chest discomfort [Recovered/Resolved]
  - Off label use [Unknown]

NARRATIVE: CASE EVENT DATE: 20210716
